FAERS Safety Report 12920132 (Version 1)
Quarter: 2016Q4

REPORT INFORMATION
  Report Type: Spontaneous
  Country: US (occurrence: US)
  Receive Date: 20161104
  Receipt Date: 20161104
  Transmission Date: 20170207
  Serious: Yes (Other)
  Sender: FDA-Public Use
  Company Number: None

PATIENT
  Age: 65 Year
  Sex: Female
  Weight: 78.3 kg

DRUGS (3)
  1. PRAMIPEXOLE. [Concomitant]
     Active Substance: PRAMIPEXOLE
  2. ZOLIPEDEM [Concomitant]
  3. CEFUROXIME. [Suspect]
     Active Substance: CEFUROXIME
     Indication: SINUS OPERATION
     Dosage: ?          QUANTITY:20 TABLET(S);?
     Route: 048
     Dates: start: 20161102, end: 20161103

REACTIONS (4)
  - Skin swelling [None]
  - Skin warm [None]
  - Pruritus [None]
  - Erythema [None]

NARRATIVE: CASE EVENT DATE: 20161104
